FAERS Safety Report 20405389 (Version 1)
Quarter: 2022Q1

REPORT INFORMATION
  Report Type: Spontaneous
  Country: US (occurrence: US)
  Receive Date: 20220131
  Receipt Date: 20220131
  Transmission Date: 20220424
  Serious: Yes (Death, Hospitalization, Other)
  Sender: FDA-Public Use
  Company Number: US-ASTELLAS-2022US002828

PATIENT
  Age: 74 Year
  Sex: Male

DRUGS (4)
  1. TACROLIMUS [Suspect]
     Active Substance: TACROLIMUS
     Indication: Renal transplant
     Dosage: UNK UNK, TWICE DAILY (5 MG IN THE MORNING AND 4 MG IN THE EVENING)
     Route: 065
  2. SULFAMETHOXAZOLE AND TRIMETHOPRIM [Concomitant]
     Active Substance: SULFAMETHOXAZOLE\TRIMETHOPRIM
     Indication: Product used for unknown indication
     Dosage: UNK UNK, OTHER (SULFAMETHOXAZOLE 400 MG-TRIMETHOPRIM 80 MG EVERY MONDAY, WEDNESDAY, AND FRIDAY)
     Route: 065
  3. PREDNISONE [Concomitant]
     Active Substance: PREDNISONE
     Indication: Renal transplant
     Route: 065
  4. MYCOPHENOLIC ACID [Concomitant]
     Active Substance: MYCOPHENOLIC ACID
     Indication: Renal transplant
     Route: 065

REACTIONS (4)
  - Pulmonary haemorrhage [Fatal]
  - Blastomycosis [Fatal]
  - Acute respiratory distress syndrome [Fatal]
  - Pneumonia [Fatal]
